FAERS Safety Report 24127000 (Version 1)
Quarter: 2024Q3

REPORT INFORMATION
  Report Type: Spontaneous
  Country: US (occurrence: US)
  Receive Date: 20240723
  Receipt Date: 20240723
  Transmission Date: 20241017
  Serious: Yes (Death, Other)
  Sender: RANBAXY
  Company Number: US-SUN PHARMACEUTICAL INDUSTRIES LTD-2024R1-457667

PATIENT

DRUGS (4)
  1. ASPIRIN [Suspect]
     Active Substance: ASPIRIN
     Indication: Prophylaxis
     Dosage: 81 MILLIGRAM, DAILY
     Route: 064
  2. INSULIN NOS [Suspect]
     Active Substance: INSULIN NOS
     Indication: Organ transplant
     Dosage: 5-10 UNITS PER DAY IN THE FIRST TRIMESTER
     Route: 064
  3. INSULIN NOS [Suspect]
     Active Substance: INSULIN NOS
     Dosage: 15-45 UNITS PER DAY IN THE SECOND TRIMESTER
     Route: 064
  4. INSULIN NOS [Suspect]
     Active Substance: INSULIN NOS
     Dosage: 35-70 UNITS PER DAY IN THE THIRD TRIMESTER
     Route: 064

REACTIONS (3)
  - Necrotising colitis [Fatal]
  - Foetal exposure during pregnancy [Unknown]
  - Premature baby [Unknown]
